FAERS Safety Report 6623905-X (Version None)
Quarter: 2010Q1

REPORT INFORMATION
  Report Type: 
  Country: None (occurrence: None)
  Receive Date: 20100304
  Receipt Date: 20100226
  Transmission Date: 20100710
  Serious: Yes (Life-Threatening, Hospitalization)
  Sender: FDA-Public Use
  Company Number: 2010-0555

PATIENT
  Age: 81 Year
  Sex: Female

DRUGS (1)
  1. DYSPORT [Suspect]
     Indication: DYSTONIA
     Dosage: 1000 IU (1000 IU, CYCLICAL, EVERY 4-6 MONTHS),
     Dates: start: 20050101, end: 20091116

REACTIONS (4)
  - BOTULISM [None]
  - OFF LABEL USE [None]
  - PNEUMONIA ASPIRATION [None]
  - RESPIRATORY FAILURE [None]
